FAERS Safety Report 9265009 (Version 1)
Quarter: 2013Q2

REPORT INFORMATION
  Report Type: Spontaneous
  Country: US (occurrence: None)
  Receive Date: 20130430
  Receipt Date: 20130430
  Transmission Date: 20140414
  Serious: Yes (Other)
  Sender: FDA-Public Use
  Company Number: None

PATIENT
  Sex: Female

DRUGS (2)
  1. RIZATRIPTAN [Suspect]
     Indication: NAUSEA
     Dates: start: 20130125, end: 20130220
  2. RIZATRIPTAN [Suspect]
     Indication: VOMITING
     Dates: start: 20130125, end: 20130220

REACTIONS (4)
  - Nausea [None]
  - Vomiting [None]
  - Diarrhoea [None]
  - Product substitution issue [None]
